FAERS Safety Report 8259234-0 (Version None)
Quarter: 2012Q2

REPORT INFORMATION
  Report Type: 
  Country: None (occurrence: None)
  Receive Date: 20120404
  Receipt Date: 20120329
  Transmission Date: 20120825
  Serious: No
  Sender: FDA-Public Use
  Company Number: US-PFIZER INC-2012081231

PATIENT
  Sex: Female
  Weight: 65 kg

DRUGS (1)
  1. RELPAX [Suspect]
     Indication: MIGRAINE
     Dosage: 40 MG, 1X/DAY
     Route: 048
     Dates: start: 20120329

REACTIONS (4)
  - DRUG DISPENSING ERROR [None]
  - BURNING SENSATION [None]
  - EXPIRED DRUG ADMINISTERED [None]
  - TINNITUS [None]
